FAERS Safety Report 19150701 (Version 1)
Quarter: 2021Q2

REPORT INFORMATION
  Report Type: Spontaneous
  Country: JP (occurrence: JP)
  Receive Date: 20210419
  Receipt Date: 20210419
  Transmission Date: 20210717
  Serious: Yes (Other)
  Sender: FDA-Public Use
  Company Number: JP-SUN PHARMACEUTICAL INDUSTRIES LTD-2021R1-291448

PATIENT
  Age: 68 Year
  Sex: Female

DRUGS (2)
  1. SPIRONOLACTONE. [Suspect]
     Active Substance: SPIRONOLACTONE
     Indication: HYPERALDOSTERONISM
     Dosage: UNK (25?50MG/DAY)
     Route: 065
  2. SYMMETREL [Interacting]
     Active Substance: AMANTADINE HYDROCHLORIDE
     Indication: CEREBRAL INFARCTION
     Dosage: UNK
     Route: 065

REACTIONS (3)
  - Drug interaction [Unknown]
  - Renal impairment [Recovering/Resolving]
  - Toxicity to various agents [Recovered/Resolved]
